FAERS Safety Report 13160923 (Version 1)
Quarter: 2017Q1

REPORT INFORMATION
  Report Type: Spontaneous
  Country: DE (occurrence: DE)
  Receive Date: 20170130
  Receipt Date: 20170130
  Transmission Date: 20170428
  Serious: Yes (Other)
  Sender: FDA-Public Use
  Company Number: DE-BION-005916

PATIENT
  Age: 8 Day
  Sex: Female

DRUGS (4)
  1. PHENOBARBITAL. [Concomitant]
     Active Substance: PHENOBARBITAL
     Indication: CONVULSION NEONATAL
     Dosage: LOADING WITH 20MG/KG AND CONTINUED TREATMENT WITH 5.5 MG/KG/D IN TWO SINGLE DOSAGES
  2. TOPIRAMATE. [Concomitant]
     Active Substance: TOPIRAMATE
     Indication: CONVULSION NEONATAL
  3. LIDOCAINE HYDROCHLORIDE. [Suspect]
     Active Substance: LIDOCAINE HYDROCHLORIDE
     Indication: CONVULSION NEONATAL
     Dosage: AFTER A BOLUS OF 6MG/KG WITHIN 20 MINUTES, CONTINUOUS INFUSION WITH 4MG/KG/H?CUMULATIVE DOSE:102/24
     Route: 042
  4. MIDAZOLAM [Concomitant]
     Active Substance: MIDAZOLAM HYDROCHLORIDE
     Indication: CONVULSION NEONATAL
     Dosage: MAX. 0.25 MG/KG/H

REACTIONS (1)
  - Methaemoglobinaemia [Recovered/Resolved]
